FAERS Safety Report 7897105-X (Version None)
Quarter: 2011Q4

REPORT INFORMATION
  Report Type: 
  Country: None (occurrence: None)
  Receive Date: 20111107
  Receipt Date: 20111024
  Transmission Date: 20120403
  Serious: No
  Sender: FDA-Public Use
  Company Number: US-B.I. PHARMACEUTICALS,INC./RIDGEFIELD-2011-BP-17825BP

PATIENT
  Sex: Female

DRUGS (19)
  1. ZOCOR [Concomitant]
     Indication: BLOOD CHOLESTEROL INCREASED
     Dosage: 40 MG
     Route: 048
     Dates: start: 20030101
  2. SYNTHROID [Concomitant]
  3. CELEBREX [Concomitant]
     Indication: ARTHRITIS
     Dosage: 100 MG
     Route: 048
     Dates: start: 19900101
  4. PREVACID [Concomitant]
     Indication: GASTROOESOPHAGEAL REFLUX DISEASE
     Dosage: 30 MG
     Route: 048
     Dates: start: 20080101
  5. VIT C [Concomitant]
  6. COUMADIN [Concomitant]
  7. SKELAXIN [Concomitant]
     Indication: BACK PAIN
     Dates: start: 20080101
  8. LEVOTHYROXINE SODIUM [Concomitant]
     Indication: HYPOTHYROIDISM
     Dosage: 88 MCG
     Route: 048
     Dates: start: 19900101
  9. ESTRATEST [Concomitant]
  10. PRADAXA [Suspect]
     Indication: ATRIAL FIBRILLATION
     Dosage: 300 MG
     Route: 048
     Dates: start: 20110401, end: 20110701
  11. ZIAC [Concomitant]
     Indication: HYPERTENSION
     Route: 048
     Dates: start: 20070101
  12. EEMT [Concomitant]
     Indication: MENOPAUSE
     Route: 048
     Dates: start: 20090101
  13. VITAMIN D [Concomitant]
  14. VITAMIN B-12 [Concomitant]
  15. DILTIAZEM HCL [Concomitant]
     Indication: HYPERTENSION
     Dosage: 180 MG
     Route: 048
     Dates: start: 20070101
  16. DIGOXIN [Concomitant]
     Indication: ATRIAL FIBRILLATION
     Dosage: 0.0125 MG
     Route: 048
     Dates: start: 20080101
  17. PROMETRIUM [Concomitant]
     Indication: MENOPAUSE
     Dosage: 100 MG
     Route: 048
     Dates: start: 20030101
  18. ACYCLOVIR [Concomitant]
     Indication: HERPES VIRUS INFECTION
     Dosage: 800 MG
     Route: 048
     Dates: start: 19820101
  19. CLONAZEPAM [Concomitant]
     Indication: INSOMNIA
     Dates: start: 20020101

REACTIONS (2)
  - ERUCTATION [None]
  - DYSPEPSIA [None]
